FAERS Safety Report 20515267 (Version 1)
Quarter: 2022Q1

REPORT INFORMATION
  Report Type: Report from Study
  Country: CN (occurrence: CN)
  Receive Date: 20220224
  Receipt Date: 20220224
  Transmission Date: 20220423
  Serious: Yes (Hospitalization)
  Sender: FDA-Public Use
  Company Number: CN-EVEREST MEDICINES II (HK) LIMITED-2022-EVER-000012

PATIENT
  Age: 52 Year
  Sex: Female
  Weight: 58 kg

DRUGS (10)
  1. SACITUZUMAB GOVITECAN [Suspect]
     Active Substance: SACITUZUMAB GOVITECAN
     Indication: Neoplasm
     Dosage: 10 MILLIGRAM/KILOGRAM, CYCLE 5 DAY 1
     Route: 042
     Dates: start: 20220209, end: 20220209
  2. SACITUZUMAB GOVITECAN [Suspect]
     Active Substance: SACITUZUMAB GOVITECAN
     Indication: Squamous cell carcinoma of the cervix
     Dosage: 10 MILLIGRAM/KILOGRAM, CYCLE 1 DAY 1
     Route: 042
     Dates: start: 20211109
  3. SACITUZUMAB GOVITECAN [Suspect]
     Active Substance: SACITUZUMAB GOVITECAN
     Dosage: 590 MG, CYCLE 5 DAY 8
     Route: 042
     Dates: start: 20220221
  4. CIMETIDINE [Concomitant]
     Active Substance: CIMETIDINE
     Indication: Prophylaxis of nausea and vomiting
     Dosage: 0.2 GRAM, QD
     Route: 065
     Dates: start: 20220209, end: 20220209
  5. PALONOSETRON [Concomitant]
     Active Substance: PALONOSETRON
     Indication: Prophylaxis of nausea and vomiting
     Dosage: 0.25 MILLIGRAM, QD
     Route: 065
     Dates: start: 20020209, end: 20220209
  6. DEXAMETHASONE [Concomitant]
     Active Substance: DEXAMETHASONE
     Indication: Infusion related reaction
     Dosage: 10 MILLIGRAM, QD
     Route: 065
     Dates: start: 20220209, end: 20220209
  7. PROMETHAZINE HYDROCHLORIDE [Concomitant]
     Active Substance: PROMETHAZINE HYDROCHLORIDE
     Indication: Infusion related reaction
     Dosage: 25 MILLIGRAM, QD
     Route: 065
     Dates: start: 20220209, end: 20220209
  8. DICLOFENAC [Concomitant]
     Active Substance: DICLOFENAC
     Indication: Pyrexia
     Dosage: 25 MILLIGRAM, QD
     Route: 065
     Dates: start: 20220209, end: 20220209
  9. SHENG BAI [Concomitant]
     Indication: White blood cell count decreased
     Dosage: 0.4 GRAM, TID
     Route: 065
     Dates: start: 20220210, end: 20220219
  10. SHENG BAI [Concomitant]
     Dosage: 0.4 GRAM, TID
     Route: 065
     Dates: start: 20220220

REACTIONS (1)
  - Hepatic function abnormal [Recovered/Resolved]

NARRATIVE: CASE EVENT DATE: 20220215
